FAERS Safety Report 10371640 (Version 1)
Quarter: 2014Q3

REPORT INFORMATION
  Report Type: Spontaneous
  Country: US (occurrence: None)
  Receive Date: 20140807
  Receipt Date: 20140807
  Transmission Date: 20150326
  Serious: Yes (Life-Threatening, Hospitalization, Disabling, Other)
  Sender: FDA-Public Use
  Company Number: None

PATIENT
  Age: 30 Year
  Sex: Female
  Weight: 70.31 kg

DRUGS (2)
  1. XARELTO [Suspect]
     Active Substance: RIVAROXABAN
     Indication: THROMBOSIS PROPHYLAXIS
     Route: 048
     Dates: start: 20140731, end: 20140802
  2. XARELTO [Suspect]
     Active Substance: RIVAROXABAN
     Indication: POSTOPERATIVE CARE
     Route: 048
     Dates: start: 20140731, end: 20140802

REACTIONS (9)
  - Retinal haemorrhage [None]
  - Anaemia [None]
  - Vision blurred [None]
  - Pallor [None]
  - Eye pain [None]
  - Lethargy [None]
  - Limb discomfort [None]
  - Pain in extremity [None]
  - Metamorphopsia [None]

NARRATIVE: CASE EVENT DATE: 20140802
